FAERS Safety Report 11654452 (Version 2)
Quarter: 2015Q4

REPORT INFORMATION
  Report Type: Spontaneous
  Country: CH (occurrence: CH)
  Receive Date: 20151023
  Receipt Date: 20151113
  Transmission Date: 20160304
  Serious: Yes (Other)
  Sender: FDA-Public Use
  Company Number: CH-AMGEN-CHESP2015110852

PATIENT
  Age: 71 Year
  Sex: Female
  Weight: 57.9 kg

DRUGS (1)
  1. PROLIA [Suspect]
     Active Substance: DENOSUMAB
     Indication: OSTEOPOROSIS
     Dosage: 60 MG, UNK
     Route: 065
     Dates: start: 20150305

REACTIONS (6)
  - Sjogren^s syndrome [Unknown]
  - Peripheral swelling [Unknown]
  - Dry eye [Unknown]
  - Arthritis [Unknown]
  - Tongue dry [Unknown]
  - Nasal dryness [Unknown]

NARRATIVE: CASE EVENT DATE: 2015
